FAERS Safety Report 5562436-5 (Version None)
Quarter: 2007Q4

REPORT INFORMATION
  Report Type: 
  Country: None (occurrence: None)
  Receive Date: 20071215
  Receipt Date: 20070503
  Transmission Date: 20080405
  Serious: No
  Sender: FDA-Public Use
  Company Number: US-AMGEN-US222940

PATIENT
  Sex: Female

DRUGS (9)
  1. ARANESP [Suspect]
     Indication: ANAEMIA
     Route: 065
     Dates: start: 20070403
  2. IRON SULFATETHIAMIN COMPOUND TAB [Concomitant]
     Route: 065
  3. SYNTHROID [Concomitant]
     Route: 065
  4. VITAMIN E [Concomitant]
     Route: 065
  5. VITAMIN B-12 [Concomitant]
     Route: 065
  6. ASCORBIC ACID [Concomitant]
     Route: 065
  7. TRAZODONE HCL [Concomitant]
     Route: 065
  8. LACTULOSE [Concomitant]
     Route: 065
  9. CALCIUM [Concomitant]
     Route: 065

REACTIONS (1)
  - THERAPEUTIC RESPONSE DECREASED [None]
